FAERS Safety Report 20601467 (Version 1)
Quarter: 2022Q1

REPORT INFORMATION
  Report Type: Spontaneous
  Country: US (occurrence: None)
  Receive Date: 20220315
  Receipt Date: 20220315
  Transmission Date: 20220424
  Serious: No
  Sender: FDA-Public Use
  Company Number: None

PATIENT
  Age: 24 Year
  Sex: Male

DRUGS (2)
  1. KOSELUGO [Suspect]
     Active Substance: SELUMETINIB
     Indication: Neurofibromatosis
     Dates: end: 20220203
  2. KOSELUGO [Suspect]
     Active Substance: SELUMETINIB
     Indication: Neurofibromatosis
     Dates: end: 20220203

REACTIONS (3)
  - Rash [None]
  - Palmar-plantar erythrodysaesthesia syndrome [None]
  - Adverse drug reaction [None]

NARRATIVE: CASE EVENT DATE: 20220203
